FAERS Safety Report 15586372 (Version 8)
Quarter: 2019Q1

REPORT INFORMATION
  Report Type: Spontaneous
  Country: GB (occurrence: GB)
  Receive Date: 20181105
  Receipt Date: 20190301
  Transmission Date: 20190417
  Serious: Yes (Disabling, Other)
  Sender: FDA-Public Use
  Company Number: GB-MYLANLABS-2018M1080362

PATIENT
  Age: 63 Year
  Sex: Female
  Weight: 65 kg

DRUGS (2)
  1. PENICILLIN                         /00000901/ [Concomitant]
     Active Substance: PENICILLIN G
     Indication: SINUSITIS
     Dosage: UNK
  2. LANSOPRAZOLE 15 MG GASTRO-RESISTANT CAPSULES [Suspect]
     Active Substance: LANSOPRAZOLE
     Indication: GASTROOESOPHAGEAL REFLUX DISEASE
     Dosage: 15 MILLIGRAM, BID
     Dates: start: 20180625

REACTIONS (39)
  - Gait disturbance [Unknown]
  - Wound [Unknown]
  - Muscle twitching [Unknown]
  - Eye pain [Unknown]
  - Ill-defined disorder [Unknown]
  - Limb discomfort [Not Recovered/Not Resolved]
  - Myalgia [Recovering/Resolving]
  - Ocular hyperaemia [Unknown]
  - Tinnitus [Unknown]
  - Multi-organ disorder [Unknown]
  - Functional gastrointestinal disorder [Unknown]
  - Insomnia [Unknown]
  - Neuralgia [Not Recovered/Not Resolved]
  - Autoimmune disorder [Unknown]
  - Rash [Not Recovered/Not Resolved]
  - Blepharospasm [Unknown]
  - Erythema [Unknown]
  - Pain in extremity [Unknown]
  - Joint swelling [Not Recovered/Not Resolved]
  - Arthralgia [Recovering/Resolving]
  - Condition aggravated [Unknown]
  - Neck pain [Unknown]
  - Bedridden [Unknown]
  - Adverse drug reaction [Unknown]
  - Feeding disorder [Unknown]
  - Dysstasia [Unknown]
  - Muscle spasms [Unknown]
  - Feeling abnormal [Unknown]
  - Contusion [Unknown]
  - Memory impairment [Unknown]
  - Peripheral swelling [Unknown]
  - Fall [Not Recovered/Not Resolved]
  - Pain [Unknown]
  - Eye swelling [Not Recovered/Not Resolved]
  - Mobility decreased [Unknown]
  - Loss of personal independence in daily activities [Unknown]
  - Confusional state [Unknown]
  - Rash macular [Unknown]
  - Toxicity to various agents [Unknown]

NARRATIVE: CASE EVENT DATE: 201806
